FAERS Safety Report 7654969-2 (Version None)
Quarter: 2011Q3

REPORT INFORMATION
  Report Type: 
  Country: None (occurrence: None)
  Receive Date: 20110804
  Receipt Date: 20110725
  Transmission Date: 20111222
  Serious: No
  Sender: FDA-Public Use
  Company Number: PHHY2011US39883

PATIENT
  Sex: Female

DRUGS (1)
  1. STALEVO 100 [Suspect]
     Dosage: 1 DF, 6QD
     Route: 048
     Dates: start: 20041222

REACTIONS (1)
  - WRONG TECHNIQUE IN DRUG USAGE PROCESS [None]
